FAERS Safety Report 8185058-9 (Version None)
Quarter: 2012Q1

REPORT INFORMATION
  Report Type: 
  Country: None (occurrence: None)
  Receive Date: 20120305
  Receipt Date: 20120228
  Transmission Date: 20120608
  Serious: Yes (Other)
  Sender: FDA-Public Use
  Company Number: US-PFIZER INC-2012054125

PATIENT
  Sex: Male

DRUGS (3)
  1. XANAX [Suspect]
     Dosage: UNK
  2. LIPITOR [Suspect]
     Indication: MYOCARDIAL INFARCTION
     Dosage: UNK
  3. NITROSTAT [Suspect]
     Dosage: UNK

REACTIONS (3)
  - BIPOLAR DISORDER [None]
  - WEIGHT DECREASED [None]
  - EATING DISORDER [None]
